FAERS Safety Report 12137275 (Version 2)
Quarter: 2016Q2

REPORT INFORMATION
  Report Type: Spontaneous
  Country: CA (occurrence: CA)
  Receive Date: 20160302
  Receipt Date: 20160525
  Transmission Date: 20160815
  Serious: Yes (Other)
  Sender: FDA-Public Use
  Company Number: CA-PFIZER INC-2016133332

PATIENT
  Age: 7 Year
  Sex: Male

DRUGS (3)
  1. CHILDRENS ADVIL COLD [Suspect]
     Active Substance: IBUPROFEN\PSEUDOEPHEDRINE HYDROCHLORIDE
     Indication: NASOPHARYNGITIS
     Dosage: UNK
  2. TYLENOL NIGHT TIME [Concomitant]
  3. CHILDRENS ADVIL COLD [Suspect]
     Active Substance: IBUPROFEN\PSEUDOEPHEDRINE HYDROCHLORIDE
     Indication: PYREXIA

REACTIONS (4)
  - Lung infection [Recovered/Resolved]
  - Product quality issue [Unknown]
  - Poor quality drug administered [Unknown]
  - Drug administration error [Unknown]
